FAERS Safety Report 6107471-3 (Version None)
Quarter: 2009Q1

REPORT INFORMATION
  Report Type: 
  Country: None (occurrence: None)
  Receive Date: 20090309
  Receipt Date: 20090226
  Transmission Date: 20090719
  Serious: No
  Sender: FDA-Public Use
  Company Number: DE-BAXTER-2009BH002030

PATIENT
  Age: 15 Year
  Sex: Female
  Weight: 62 kg

DRUGS (2)
  1. GAMMAGARD LIQUID [Suspect]
     Indication: IDIOPATHIC THROMBOCYTOPENIC PURPURA
     Route: 042
     Dates: start: 20081212, end: 20081212
  2. GAMMAGARD LIQUID [Suspect]
     Route: 042
     Dates: start: 20081212, end: 20081212

REACTIONS (1)
  - HYPERSENSITIVITY [None]
